FAERS Safety Report 7681778-0 (Version None)
Quarter: 2011Q3

REPORT INFORMATION
  Report Type: 
  Country: None (occurrence: None)
  Receive Date: 20110812
  Receipt Date: 20110803
  Transmission Date: 20111222
  Serious: Yes (Other)
  Sender: FDA-Public Use
  Company Number: US-ASTRAZENECA-2011SE46907

PATIENT
  Age: 69 Year
  Sex: Female

DRUGS (1)
  1. CRESTOR [Suspect]
     Route: 048

REACTIONS (5)
  - CATARACT OPERATION [None]
  - RENAL STONE REMOVAL [None]
  - VISUAL IMPAIRMENT [None]
  - CATARACT [None]
  - NEPHROLITHIASIS [None]
